FAERS Safety Report 15358826 (Version 2)
Quarter: 2022Q1

REPORT INFORMATION
  Report Type: Report from Study
  Country: FR (occurrence: FR)
  Receive Date: 20180906
  Receipt Date: 20220204
  Transmission Date: 20220423
  Serious: Yes (Hospitalization, Other)
  Sender: FDA-Public Use
  Company Number: FR-SHIRE-FR201833220

PATIENT

DRUGS (9)
  1. ONCASPAR [Suspect]
     Active Substance: PEGASPARGASE
     Indication: Acute lymphocytic leukaemia
     Dosage: UNK IU, UNK
     Route: 065
  2. METHOTREXATE [Suspect]
     Active Substance: METHOTREXATE
     Indication: Acute lymphocytic leukaemia
     Dosage: 15 MG, ON DAYS 13 AND 24
     Route: 037
     Dates: start: 20180612, end: 20180626
  3. ERWINASE [Suspect]
     Active Substance: ASPARAGINASE ERWINIA CHRYSANTHEMI
     Indication: Acute lymphocytic leukaemia
     Dosage: 2800 IU, 1X/DAY:QD
     Route: 042
     Dates: start: 20180702, end: 20180702
  4. HYDROCORTISONE [Suspect]
     Active Substance: HYDROCORTISONE
     Indication: Acute lymphocytic leukaemia
     Dosage: 15 MG, ON DAYS 13 AND 24
     Route: 037
     Dates: start: 20180612, end: 20180626
  5. CYTARABINE [Suspect]
     Active Substance: CYTARABINE
     Indication: Acute lymphocytic leukaemia
     Dosage: 30 MG, ON DAYS 13 AND 24
     Route: 037
     Dates: start: 20180612, end: 20180626
  6. PREDNISOLONE [Suspect]
     Active Substance: PREDNISOLONE
     Indication: Acute lymphocytic leukaemia
     Dosage: UNKNOWN DOSE, FROM DAY 8 TO DAY 28
     Route: 048
     Dates: start: 20180607, end: 20180627
  7. VINCRISTINE [Suspect]
     Active Substance: VINCRISTINE
     Indication: Acute lymphocytic leukaemia
     Dosage: 2 MG, ON DAYS 8, 15, 22 AND 29
     Route: 042
     Dates: start: 20180607, end: 20180628
  8. DAUNORUBICIN HYDROCHLORIDE [Suspect]
     Active Substance: DAUNORUBICIN HYDROCHLORIDE
     Indication: Acute lymphocytic leukaemia
     Dosage: 42 MG, ON DAYS 8, 15, 22 AND 29
     Route: 042
     Dates: start: 20180607, end: 20180628
  9. ASPARAGINASE [Suspect]
     Active Substance: ASPARAGINASE
     Indication: Acute lymphocytic leukaemia
     Dosage: 28000 IU, ON DAYS 16, 19, 21, 26, 28, 30 AND 32
     Route: 042
     Dates: start: 20180615, end: 20180702

REACTIONS (1)
  - Staphylococcal abscess [Recovered/Resolved]

NARRATIVE: CASE EVENT DATE: 20180707
